FAERS Safety Report 6227720-0 (Version None)
Quarter: 2009Q2

REPORT INFORMATION
  Report Type: 
  Country: None (occurrence: None)
  Receive Date: 20090612
  Receipt Date: 20090603
  Transmission Date: 20091009
  Serious: Yes (Hospitalization)
  Sender: FDA-Public Use
  Company Number: US-WATSON-2009-04092

PATIENT
  Age: 75 Year
  Sex: Female

DRUGS (1)
  1. NITROFURANTOIN [Suspect]
     Indication: URINARY TRACT INFECTION
     Dosage: RECEIVING THERAPY FOR 14 DAYS
     Route: 048

REACTIONS (3)
  - EOSINOPHILIA [None]
  - HYPERCOAGULATION [None]
  - ISCHAEMIC CEREBRAL INFARCTION [None]
